FAERS Safety Report 14715979 (Version 1)
Quarter: 2018Q2

REPORT INFORMATION
  Report Type: Spontaneous
  Country: DE (occurrence: DE)
  Receive Date: 20180404
  Receipt Date: 20180404
  Transmission Date: 20180711
  Serious: Yes (Death, Life-Threatening)
  Sender: FDA-Public Use
  Company Number: DE-MYLANLABS-2018M1020426

PATIENT
  Age: 42 Year
  Sex: Male

DRUGS (5)
  1. AMISULPRIDE [Suspect]
     Active Substance: AMISULPRIDE
     Indication: PSYCHOTIC DISORDER
     Dosage: 400 MG, UNK
  2. DESIPRAMINE [Concomitant]
     Active Substance: DESIPRAMINE
     Indication: PRODUCT USED FOR UNKNOWN INDICATION
     Dosage: UNK
  3. BIPERIDEN [Suspect]
     Active Substance: BIPERIDEN
     Indication: CHOLINERGIC SYNDROME
     Dosage: 4 MG, UNK
  4. IMIPRAMINE [Suspect]
     Active Substance: IMIPRAMINE
     Indication: ANTIDEPRESSANT THERAPY
     Dosage: 100 MG, QD
  5. HALOPERIDOL. [Concomitant]
     Active Substance: HALOPERIDOL
     Indication: PSYCHOTIC DISORDER
     Dosage: 20 MG, UNK

REACTIONS (16)
  - Body temperature increased [Fatal]
  - Mydriasis [Fatal]
  - Potentiating drug interaction [Fatal]
  - Tachycardia [Fatal]
  - Dyspnoea [Fatal]
  - Hyperthermia [Fatal]
  - Ventricular fibrillation [Fatal]
  - Neuroleptic malignant syndrome [Fatal]
  - Brain oedema [Fatal]
  - Blood pH decreased [Fatal]
  - Loss of consciousness [Fatal]
  - Muscle rigidity [Fatal]
  - Seizure [Fatal]
  - Hypotonia [Fatal]
  - Condition aggravated [Fatal]
  - Pulmonary oedema [Fatal]
